FAERS Safety Report 19995611 (Version 4)
Quarter: 2022Q2

REPORT INFORMATION
  Report Type: Report from Study
  Country: US (occurrence: US)
  Receive Date: 20211026
  Receipt Date: 20220407
  Transmission Date: 20220720
  Serious: No
  Sender: FDA-Public Use
  Company Number: US-NOVARTISTESTPH-NVSC2021US243335

PATIENT
  Sex: Male

DRUGS (1)
  1. KESIMPTA [Suspect]
     Active Substance: OFATUMUMAB
     Indication: Product used for unknown indication
     Dosage: 20 MG (Q 28 DAYS)
     Route: 065
     Dates: start: 20211019

REACTIONS (6)
  - COVID-19 [Unknown]
  - Pyrexia [Unknown]
  - Myalgia [Unknown]
  - Chills [Unknown]
  - Influenza [Unknown]
  - Nasopharyngitis [Unknown]
